FAERS Safety Report 14341783 (Version 1)
Quarter: 2017Q4

REPORT INFORMATION
  Report Type: Spontaneous
  Country: US (occurrence: US)
  Receive Date: 20171229
  Receipt Date: 20171229
  Transmission Date: 20180321
  Serious: Yes (Other)
  Sender: FDA-Public Use
  Company Number: None

PATIENT
  Age: 59 Year
  Sex: Female

DRUGS (6)
  1. KEVZARA [Suspect]
     Active Substance: SARILUMAB
     Indication: RHEUMATOID ARTHRITIS
     Dosage: 200MG/1.14ML 1 SYRINGE EVERY 14 DAYS INJECTIONS SQ
     Route: 058
     Dates: start: 20171115, end: 20171229
  2. HCTZ [Suspect]
     Active Substance: HYDROCHLOROTHIAZIDE
  3. PRINIVIL [Concomitant]
     Active Substance: LISINOPRIL
  4. ZOFRAN [Concomitant]
     Active Substance: ONDANSETRON HYDROCHLORIDE
  5. PLAQUENIL [Concomitant]
     Active Substance: HYDROXYCHLOROQUINE SULFATE
  6. METOPROLOL. [Suspect]
     Active Substance: METOPROLOL

REACTIONS (2)
  - Injection site reaction [None]
  - White blood cell count decreased [None]

NARRATIVE: CASE EVENT DATE: 20171229
